FAERS Safety Report 4639006-6 (Version None)
Quarter: 2005Q2

REPORT INFORMATION
  Report Type: 
  Country: None (occurrence: None)
  Receive Date: 20050415
  Receipt Date: 20050415
  Transmission Date: 20051028
  Serious: Yes (Life-Threatening)
  Sender: FDA-Public Use
  Company Number: None

PATIENT
  Age: 44 Year
  Sex: Male

DRUGS (1)
  1. PROTONIX [Suspect]
     Indication: COLON CANCER
     Dosage: 40 MG PO X 8 MONTHS
     Route: 048
     Dates: start: 20040801, end: 20050401

REACTIONS (2)
  - COLON CANCER [None]
  - SIGNET-RING CELL CARCINOMA [None]
